FAERS Safety Report 16095522 (Version 1)
Quarter: 2019Q2

REPORT INFORMATION
  Report Type: Spontaneous
  Country: US (occurrence: US)
  Receive Date: 20190320
  Receipt Date: 20190320
  Transmission Date: 20190711
  Serious: Yes (Hospitalization, Disabling)
  Sender: FDA-Public Use
  Company Number: None

PATIENT
  Age: 46 Year
  Sex: Female
  Weight: 61.23 kg

DRUGS (1)
  1. LOSARTIN [Suspect]
     Active Substance: LOSARTAN
     Dosage: ?          QUANTITY:50 MG MILLIGRAM(S);?

REACTIONS (1)
  - Blood pressure decreased [None]

NARRATIVE: CASE EVENT DATE: 20170525
